FAERS Safety Report 8367227-8 (Version None)
Quarter: 2012Q2

REPORT INFORMATION
  Report Type: 
  Country: None (occurrence: None)
  Receive Date: 20120517
  Receipt Date: 20120515
  Transmission Date: 20120825
  Serious: Yes (Other)
  Sender: FDA-Public Use
  Company Number: GXKR2012DE001732

PATIENT
  Sex: Female

DRUGS (6)
  1. VITAMIN D [Concomitant]
  2. LEVOTHYROXINE SODIUM [Concomitant]
     Route: 048
  3. KRYPTOSAN [Concomitant]
  4. SIMVASTATIN [Suspect]
  5. EMSELEX [Concomitant]
  6. ANTIBIOTICS [Concomitant]
     Indication: CYSTITIS

REACTIONS (4)
  - MULTIPLE SCLEROSIS RELAPSE [None]
  - MUSCULAR WEAKNESS [None]
  - MUSCLE SPASTICITY [None]
  - DIZZINESS [None]
